FAERS Safety Report 7954827-X (Version None)
Quarter: 2011Q4

REPORT INFORMATION
  Report Type: 
  Country: None (occurrence: None)
  Receive Date: 20111202
  Receipt Date: 20110609
  Transmission Date: 20120403
  Serious: Yes (Death, Hospitalization)
  Sender: FDA-Public Use
  Company Number: US-ACTELION-A-NJ2011-49719

PATIENT

DRUGS (2)
  1. TRACLEER [Suspect]
     Indication: PULMONARY ARTERIAL HYPERTENSION
     Dosage: UNK
     Route: 048
     Dates: start: 20101009
  2. VENTAVIS [Suspect]
     Indication: PULMONARY ARTERIAL HYPERTENSION
     Dosage: 2.5 ?G, 6 X DAY
     Route: 055
     Dates: start: 20110526, end: 20110601

REACTIONS (12)
  - SEPTIC SHOCK [None]
  - DRUG HYPERSENSITIVITY [None]
  - HYPOTENSION [None]
  - MALAISE [None]
  - RENAL FAILURE [None]
  - COUGH [None]
  - CIRCULATORY COLLAPSE [None]
  - RESPIRATORY FAILURE [None]
  - PULMONARY HYPERTENSION [None]
  - HEPATIC FAILURE [None]
  - RASH [None]
  - MENTAL DISORDER [None]
